FAERS Safety Report 10027665 (Version 2)
Quarter: 2015Q3

REPORT INFORMATION
  Report Type: Spontaneous
  Country: US (occurrence: US)
  Receive Date: 20140321
  Receipt Date: 20150730
  Transmission Date: 20151125
  Serious: No
  Sender: FDA-Public Use
  Company Number: US-009507513-1403USA001391

PATIENT
  Sex: Male

DRUGS (2)
  1. ASMANEX [Suspect]
     Active Substance: MOMETASONE FUROATE
     Indication: ASTHMA
     Dosage: UNK
     Route: 055
     Dates: start: 2008
  2. ASMANEX [Suspect]
     Active Substance: MOMETASONE FUROATE
     Dosage: 5 INHALATIONS, Q12H
     Route: 055
     Dates: start: 2014

REACTIONS (7)
  - Dyspnoea [Recovered/Resolved]
  - Product quality issue [Unknown]
  - Overdose [Unknown]
  - Dyspnoea [Recovered/Resolved]
  - Product taste abnormal [Unknown]
  - Dyspnoea [Recovered/Resolved]
  - Drug dose omission [Unknown]

NARRATIVE: CASE EVENT DATE: 2011
